FAERS Safety Report 4424487-3 (Version None)
Quarter: 2004Q3

REPORT INFORMATION
  Report Type: 
  Country: None (occurrence: None)
  Receive Date: 20040812
  Receipt Date: 20040802
  Transmission Date: 20050211
  Serious: Yes (Life-Threatening)
  Sender: FDA-Public Use
  Company Number: GB-GLAXOSMITHKLINE-B0341279A

PATIENT
  Age: 90 Year
  Sex: Female

DRUGS (9)
  1. AUGMENTIN '125' [Suspect]
     Indication: ARTHRITIS BACTERIAL
     Dosage: 1.2G UNKNOWN
     Route: 042
     Dates: start: 20040709, end: 20040709
  2. DIGOXIN [Suspect]
     Dosage: 125MCG PER DAY
     Route: 048
  3. FELODIPINE [Suspect]
     Dosage: 5MG PER DAY
     Route: 048
  4. FRUSEMIDE [Suspect]
     Dosage: 20MG PER DAY
     Route: 048
  5. RAMIPRIL [Suspect]
     Dosage: 25MG PER DAY
     Route: 048
  6. ALBUTEROL SULFATE [Concomitant]
     Indication: ASTHMA
     Dosage: 200MCG FOUR TIMES PER DAY
  7. BUDESONIDE [Concomitant]
     Indication: ASTHMA
     Dosage: 400MCG TWICE PER DAY
  8. ASPIRIN [Concomitant]
     Dosage: 75MG PER DAY
     Route: 048
  9. LACTULOSE [Concomitant]
     Dosage: 10ML PER DAY
     Route: 048

REACTIONS (4)
  - DYSPNOEA [None]
  - OXYGEN SATURATION DECREASED [None]
  - PALPITATIONS [None]
  - VOMITING [None]
